FAERS Safety Report 26130477 (Version 1)
Quarter: 2025Q4

REPORT INFORMATION
  Report Type: Spontaneous
  Country: US (occurrence: None)
  Receive Date: 20251205
  Receipt Date: 20251205
  Transmission Date: 20260118
  Serious: No
  Sender: FDA-CTU
  Company Number: None

PATIENT
  Age: 61 Year
  Sex: Female
  Weight: 97.65 kg

DRUGS (1)
  1. REZDIFFRA [Suspect]
     Active Substance: RESMETIROM
     Indication: Metabolic dysfunction-associated steatohepatitis
     Dosage: 30 TABLET(S) DAILY ORAL
     Route: 048
     Dates: start: 20251106, end: 20251205

REACTIONS (9)
  - Abdominal pain upper [None]
  - Nausea [None]
  - Diarrhoea [None]
  - Near death experience [None]
  - Anxiety [None]
  - Anxiety [None]
  - Tremor [None]
  - Crying [None]
  - Feeling of despair [None]

NARRATIVE: CASE EVENT DATE: 20251205
